FAERS Safety Report 9320603 (Version 1)
Quarter: 2013Q2

REPORT INFORMATION
  Report Type: Report from Study
  Country: US (occurrence: US)
  Receive Date: 20130531
  Receipt Date: 20130531
  Transmission Date: 20140414
  Serious: Yes (Other)
  Sender: FDA-Public Use
  Company Number: US-ROCHE-1196435

PATIENT
  Age: 56 Year
  Sex: Male
  Weight: 94.89 kg

DRUGS (3)
  1. AVASTIN [Suspect]
     Indication: GLIOBLASTOMA
     Route: 042
     Dates: start: 20130201, end: 20130507
  2. BACTRIM DS [Concomitant]
     Route: 048
     Dates: start: 201211
  3. DECADRON [Concomitant]
     Route: 048

REACTIONS (10)
  - Convulsion [Recovered/Resolved]
  - Central nervous system necrosis [Not Recovered/Not Resolved]
  - Constipation [Not Recovered/Not Resolved]
  - Stomatitis [Recovered/Resolved]
  - Rectal haemorrhage [Not Recovered/Not Resolved]
  - Tongue haemorrhage [Recovered/Resolved]
  - Laryngitis [Recovered/Resolved]
  - Epistaxis [Recovering/Resolving]
  - Hypertension [Recovered/Resolved]
  - Headache [Recovered/Resolved]
